FAERS Safety Report 10023909 (Version 1)
Quarter: 2014Q1

REPORT INFORMATION
  Report Type: Spontaneous
  Country: US (occurrence: US)
  Receive Date: 20140320
  Receipt Date: 20140320
  Transmission Date: 20141002
  Serious: No
  Sender: FDA-Public Use
  Company Number: US-009507513-1403USA003211

PATIENT
  Age: 53 Year
  Sex: Female

DRUGS (1)
  1. NASONEX [Suspect]
     Indication: HYPERSENSITIVITY
     Dosage: 1 TO 2 SPRAYS IN EACH NOSTRIL DAILY
     Route: 045
     Dates: start: 2013

REACTIONS (4)
  - Eye pruritus [Not Recovered/Not Resolved]
  - Underdose [Unknown]
  - Drug dose omission [Unknown]
  - Product quality issue [Unknown]
